FAERS Safety Report 7072103-7 (Version None)
Quarter: 2010Q4

REPORT INFORMATION
  Report Type: 
  Country: None (occurrence: None)
  Receive Date: 20101029
  Receipt Date: 20091201
  Transmission Date: 20110411
  Serious: No
  Sender: FDA-Public Use
  Company Number: A0832519A

PATIENT
  Age: 63 Year
  Sex: Male

DRUGS (2)
  1. ADVAIR DISKUS 100/50 [Suspect]
     Dosage: 1PUFF TWICE PER DAY
     Route: 055
     Dates: start: 20091125
  2. NO CONCURRENT MEDICATION [Concomitant]

REACTIONS (5)
  - AMNESIA [None]
  - EXPIRED DRUG ADMINISTERED [None]
  - HEADACHE [None]
  - NERVOUSNESS [None]
  - TREMOR [None]
